FAERS Safety Report 8297081-4 (Version None)
Quarter: 2012Q1

REPORT INFORMATION
  Report Type: 
  Country: None (occurrence: None)
  Receive Date: 20120322
  Receipt Date: 20120215
  Transmission Date: 20120608
  Serious: Yes (Death, Hospitalization)
  Sender: FDA-Public Use
  Company Number: UT-014470

PATIENT
  Age: 64 Year
  Sex: Male
  Weight: 90.9 kg

DRUGS (2)
  1. TYVASO [Suspect]
     Indication: COR PULMONALE CHRONIC
     Dosage: INHALATION
     Route: 055
     Dates: start: 20111215
  2. REVATIO (SILDFENAFIL CITRATE) [Concomitant]

REACTIONS (4)
  - DEATH [None]
  - HYPOXIA [None]
  - DEEP VEIN THROMBOSIS [None]
  - PULMONARY EMBOLISM [None]
